FAERS Safety Report 18378534 (Version 1)
Quarter: 2020Q4

REPORT INFORMATION
  Report Type: Spontaneous
  Country: US (occurrence: US)
  Receive Date: 20201013
  Receipt Date: 20201013
  Transmission Date: 20210114
  Serious: No
  Sender: FDA-Public Use
  Company Number: US-AMNEAL PHARMACEUTICALS-2020-AMRX-02269

PATIENT
  Sex: Female
  Weight: 61 kg

DRUGS (4)
  1. DOXYCYCLINE HYCLATE. [Concomitant]
     Active Substance: DOXYCYCLINE HYCLATE
     Indication: ACNE
     Dosage: 1 CAPSULES, DAILY
     Route: 048
  2. CLINDAMYCIN. [Concomitant]
     Active Substance: CLINDAMYCIN
     Indication: ACNE
     Dosage: 1 DOSAGE FORM, MORNING
     Route: 061
  3. ISOTRETINOIN. [Suspect]
     Active Substance: ISOTRETINOIN
     Indication: ACNE
     Dosage: 20 MILLIGRAM, QD
     Route: 065
     Dates: start: 20200624, end: 20200727
  4. TRETINOIN. [Concomitant]
     Active Substance: TRETINOIN
     Indication: ACNE
     Dosage: 1 APPLICATION APPLY ON SKIN NIGHTLY GREEN PEA SIZE AMOUNT FOR ENTIRE FACE
     Route: 061

REACTIONS (6)
  - Dyspepsia [Unknown]
  - Lip dry [Unknown]
  - Pruritus [Unknown]
  - Dry skin [Unknown]
  - Nausea [Unknown]
  - Vomiting [Unknown]

NARRATIVE: CASE EVENT DATE: 2020
